FAERS Safety Report 13917773 (Version 1)
Quarter: 2017Q3

REPORT INFORMATION
  Report Type: Spontaneous
  Country: US (occurrence: US)
  Receive Date: 20170829
  Receipt Date: 20170829
  Transmission Date: 20171127
  Serious: Yes (Other)
  Sender: FDA-Public Use
  Company Number: US-MALLINCKRODT-T201703547

PATIENT
  Sex: Female
  Weight: 91 kg

DRUGS (2)
  1. FENTANYL TRANSDERMAL SYSTEM [Suspect]
     Active Substance: FENTANYL
     Indication: BREAST CANCER STAGE IV
     Dosage: 100MCG/HOUR, EVERY 72 HOURS
     Route: 062
     Dates: start: 201701
  2. FENTANYL TRANSDERMAL SYSTEM [Suspect]
     Active Substance: FENTANYL
     Indication: METASTASES TO BONE

REACTIONS (5)
  - Chills [Unknown]
  - Nausea [Unknown]
  - Product adhesion issue [Unknown]
  - Suicidal ideation [Unknown]
  - Drug withdrawal syndrome [Unknown]
